FAERS Safety Report 15888964 (Version 1)
Quarter: 2019Q1

REPORT INFORMATION
  Report Type: Spontaneous
  Country: TR (occurrence: TR)
  Receive Date: 20190130
  Receipt Date: 20190130
  Transmission Date: 20190417
  Serious: Yes (Death, Life-Threatening)
  Sender: FDA-Public Use
  Company Number: TR-ROCHE-2254120

PATIENT
  Age: 23 Year
  Sex: Female

DRUGS (5)
  1. ACTILYSE [Suspect]
     Active Substance: ALTEPLASE
     Dosage: FOR 2 HOURS
     Route: 042
  2. CEFTRIAXONE. [Concomitant]
     Active Substance: CEFTRIAXONE
     Indication: PRODUCT USED FOR UNKNOWN INDICATION
     Route: 065
  3. ENOXAPARIN [Concomitant]
     Active Substance: ENOXAPARIN
     Indication: PRODUCT USED FOR UNKNOWN INDICATION
     Route: 058
  4. ACTILYSE [Suspect]
     Active Substance: ALTEPLASE
     Route: 040
  5. ACTILYSE [Suspect]
     Active Substance: ALTEPLASE
     Indication: PULMONARY EMBOLISM
     Dosage: IN 1 HOUR
     Route: 042

REACTIONS (7)
  - Gastrointestinal haemorrhage [Fatal]
  - Metabolic acidosis [Unknown]
  - Cardio-respiratory arrest [Unknown]
  - Renal failure [Fatal]
  - Condition aggravated [Unknown]
  - Pulmonary embolism [Unknown]
  - Epistaxis [Unknown]
